FAERS Safety Report 4607847-7 (Version None)
Quarter: 2005Q1

REPORT INFORMATION
  Report Type: 
  Country: None (occurrence: None)
  Receive Date: 20050310
  Receipt Date: 20050225
  Transmission Date: 20050727
  Serious: Yes (Disabling)
  Sender: FDA-Public Use
  Company Number: 2005-0002-EUR

PATIENT
  Age: 73 Year

DRUGS (3)
  1. CITANEST [Suspect]
     Indication: DENTAL OPERATION
     Dosage: INJECTION
  2. CITANEST [Suspect]
     Dosage: INJECTION
  3. PENICILLIN G [Concomitant]

REACTIONS (6)
  - BLINDNESS UNILATERAL [None]
  - COUGH [None]
  - FEELING ABNORMAL [None]
  - PROCEDURAL COMPLICATION [None]
  - RETINAL VASCULAR OCCLUSION [None]
  - SINUS CONGESTION [None]
